FAERS Safety Report 5120423-5 (Version None)
Quarter: 2006Q4

REPORT INFORMATION
  Report Type: 
  Country: None (occurrence: None)
  Receive Date: 20061004
  Receipt Date: 20060928
  Transmission Date: 20070319
  Serious: Yes (Congenital Anomaly)
  Sender: FDA-Public Use
  Company Number: 06P-167-0343129-005

PATIENT

DRUGS (4)
  1. LAMIVUDINE [Suspect]
  2. ZIDOVUDINE [Suspect]
  3. NORVIR [Suspect]
  4. SAQUINAVIR MESILATE [Suspect]

REACTIONS (2)
  - DRUG EXPOSURE DURING PREGNANCY [None]
  - HYDRONEPHROSIS [None]
